FAERS Safety Report 18133994 (Version 1)
Quarter: 2020Q3

REPORT INFORMATION
  Report Type: Spontaneous
  Country: US (occurrence: US)
  Receive Date: 20200807
  Receipt Date: 20200807
  Transmission Date: 20201103
  Serious: Yes (Hospitalization)
  Sender: FDA-Public Use
  Company Number: None

PATIENT
  Age: 59 Year
  Sex: Male

DRUGS (27)
  1. ALLOPURINOL. [Concomitant]
     Active Substance: ALLOPURINOL
  2. FEROSUL [Concomitant]
     Active Substance: FERROUS SULFATE
  3. FLUOXETINE [Concomitant]
     Active Substance: FLUOXETINE HYDROCHLORIDE
  4. FOLIC ACID. [Concomitant]
     Active Substance: FOLIC ACID
  5. FUROSEMIDE. [Concomitant]
     Active Substance: FUROSEMIDE
  6. BENAZEPRIL [Concomitant]
     Active Substance: BENAZEPRIL HYDROCHLORIDE
  7. DOXYCYCLE HYC [Concomitant]
  8. LEVOFLOXACIN. [Concomitant]
     Active Substance: LEVOFLOXACIN
  9. METOPROL TAR [Concomitant]
  10. CITALOPRAM [Concomitant]
     Active Substance: CITALOPRAM HYDROBROMIDE
  11. CEFDINIR. [Concomitant]
     Active Substance: CEFDINIR
  12. METHYLPRED [Concomitant]
     Active Substance: METHYLPREDNISOLONE
  13. PREDNISONE. [Concomitant]
     Active Substance: PREDNISONE
  14. PROMETH/CODEINE [Concomitant]
     Active Substance: CODEINE\PROMETHAZINE
  15. CLOPIDOGREL [Concomitant]
     Active Substance: CLOPIDOGREL BISULFATE
  16. METOPROL SUC [Concomitant]
  17. REPATHA [Suspect]
     Active Substance: EVOLOCUMAB
     Indication: HYPERLIPIDAEMIA
     Route: 058
     Dates: start: 20180616
  18. AMLOD/BENAZPRL CAPSULE 5/10 [Concomitant]
     Active Substance: AMLODIPINE BESYLATE\BENAZEPRIL HYDROCHLORIDE
  19. ASPIRIN 81 [Concomitant]
     Active Substance: ASPIRIN
  20. CINNAMON. [Concomitant]
     Active Substance: CINNAMON
  21. SSPIRONOLACT [Concomitant]
  22. TURMERIC [Concomitant]
     Active Substance: HERBALS\TURMERIC
  23. D3?1000 [Concomitant]
  24. MITIGARE [Concomitant]
     Active Substance: COLCHICINE
  25. ELIQUIS [Concomitant]
     Active Substance: APIXABAN
  26. PANTOPRAZOLE [Concomitant]
     Active Substance: PANTOPRAZOLE
  27. RANOLAZINE. [Concomitant]
     Active Substance: RANOLAZINE

REACTIONS (1)
  - Cardiac operation [None]

NARRATIVE: CASE EVENT DATE: 20200709
